FAERS Safety Report 7762975-2 (Version None)
Quarter: 2011Q3

REPORT INFORMATION
  Report Type: 
  Country: None (occurrence: None)
  Receive Date: 20110920
  Receipt Date: 20110912
  Transmission Date: 20111222
  Serious: Yes (Other)
  Sender: FDA-Public Use
  Company Number: US-JNJFOC-20110702482

PATIENT
  Age: 31 Year
  Sex: Female

DRUGS (2)
  1. EXTRA STRENGTH TYLENOL [Suspect]
     Route: 048
  2. EXTRA STRENGTH TYLENOL [Suspect]
     Indication: HEADACHE
     Route: 048
     Dates: start: 20110601, end: 20110601

REACTIONS (5)
  - DIARRHOEA [None]
  - PRODUCT QUALITY ISSUE [None]
  - MATERNAL EXPOSURE DURING PREGNANCY [None]
  - LOSS OF CONSCIOUSNESS [None]
  - ABDOMINAL PAIN UPPER [None]
